FAERS Safety Report 19943561 (Version 1)
Quarter: 2021Q4

REPORT INFORMATION
  Report Type: Spontaneous
  Country: DE (occurrence: DE)
  Receive Date: 20211012
  Receipt Date: 20211012
  Transmission Date: 20220303
  Serious: Yes (Hospitalization, Other)
  Sender: FDA-Public Use
  Company Number: DE-ADRED-06282-01

PATIENT
  Age: 74 Year
  Sex: Male

DRUGS (15)
  1. TORSEMIDE [Suspect]
     Active Substance: TORSEMIDE
     Indication: Product used for unknown indication
     Dosage: 20 MILLIGRAM, QD (20 MG, 1-0-0-0, TABLETTEN)
  2. AMPICILLIN SODIUM\SULBACTAM SODIUM [Suspect]
     Active Substance: AMPICILLIN SODIUM\SULBACTAM SODIUM
     Indication: Product used for unknown indication
     Dosage: ABGESETZT
  3. DIGITOXIN [Concomitant]
     Active Substance: DIGITOXIN
     Dosage: 0.05 MILLIGRAM, QD (0.05 MG, 1-0-0-0, TABLETTEN)
  4. RISPERIDONE [Concomitant]
     Active Substance: RISPERIDONE
     Dosage: 0.25 MILLIGRAM, QD (0.25 MG, 0-0-0-1, TABLETTEN)
  5. INSULIN GLARGINE [Concomitant]
     Active Substance: INSULIN GLARGINE
     Dosage: 16 IE, 0-0-0-1, INJEKTIONS-/INFUSIONSL?SUNG
     Route: 058
  6. APIXABAN [Concomitant]
     Active Substance: APIXABAN
     Dosage: 5 MILLIGRAM, BID (5 MG, 1-0-1-0, TABLETTEN)
  7. SACUBITRIL\VALSARTAN [Concomitant]
     Active Substance: SACUBITRIL\VALSARTAN
     Dosage: UNK UNK, BID (24|26 MG, 1-0-1-0, TABLETTEN )
  8. INSULIN LISPRO [Concomitant]
     Active Substance: INSULIN LISPRO
     Dosage: NACH PLAN, INJEKTIONS-/INFUSIONSL?SUNG
     Route: 058
  9. EMPAGLIFLOZIN [Concomitant]
     Active Substance: EMPAGLIFLOZIN
     Dosage: 10 MILLIGRAM, QD (10 MG, 1-0-0-0, TABLETTEN)
  10. EPLERENONE [Concomitant]
     Active Substance: EPLERENONE
     Dosage: 50 MILLIGRAM, QD (50 MG, 1-0-0-0, TABLETTEN)
  11. PERENTEROL [Concomitant]
     Active Substance: SACCHAROMYCES CEREVISIAE
     Dosage: 250 MILLIGRAM, BID (250 MG, 1-0-1-0, TABLETTEN)
  12. LEVOTHYROXINUM NATRICUM [Concomitant]
     Dosage: 75 MICROGRAM, QD
  13. VITAMIN B12 [Concomitant]
     Active Substance: CYANOCOBALAMIN
     Dosage: UNK UNK, QD 1-0-0-0, TABLETTEN)
  14. LACTULOSE [Concomitant]
     Active Substance: LACTULOSE
     Dosage: 5 MILLILITER (5 ML, BEDARF, SIRUP)
  15. METOPROLOL [Concomitant]
     Active Substance: METOPROLOL
     Dosage: 47.5 MILLIGRAM, BID (47.5 MG, 1-0-1-0, TABLETTEN)

REACTIONS (5)
  - General physical health deterioration [Unknown]
  - Diarrhoea [Unknown]
  - Acute kidney injury [Unknown]
  - Haematochezia [Unknown]
  - Dehydration [Unknown]
